FAERS Safety Report 9705544 (Version 1)
Quarter: 2013Q4

REPORT INFORMATION
  Report Type: Spontaneous
  Country: BR (occurrence: BR)
  Receive Date: 20131122
  Receipt Date: 20131122
  Transmission Date: 20140711
  Serious: Yes (Hospitalization, Other)
  Sender: FDA-Public Use
  Company Number: PHHY2013BR132790

PATIENT
  Age: 81 Year
  Sex: Female
  Weight: 35 kg

DRUGS (8)
  1. MIRTAZAPINE [Suspect]
     Indication: DEPRESSION
     Dosage: 15 MG, QD AT NIGHT
     Route: 048
     Dates: start: 20131110, end: 20131114
  2. MIRTAZAPINE [Suspect]
     Indication: INSOMNIA
  3. LOSARTAN [Concomitant]
     Dosage: 50 MG, UNK
  4. SIMVASTATINE [Concomitant]
  5. AAS [Concomitant]
  6. CLOPIDOGREL BISULFATE [Concomitant]
  7. SERETIDE [Concomitant]
     Indication: EMPHYSEMA
     Dosage: UNK UKN, Q12H
  8. ATROVENT N [Concomitant]
     Dosage: UNK UKN, Q6H

REACTIONS (4)
  - Circulatory collapse [Recovered/Resolved]
  - Convulsion [Recovered/Resolved]
  - Loss of consciousness [Recovered/Resolved]
  - Muscle rigidity [Recovered/Resolved]
